FAERS Safety Report 12558635 (Version 4)
Quarter: 2016Q4

REPORT INFORMATION
  Report Type: Spontaneous
  Country: CH (occurrence: CH)
  Receive Date: 20160715
  Receipt Date: 20161106
  Transmission Date: 20170207
  Serious: Yes (Death, Other)
  Sender: FDA-Public Use
  Company Number: CH-009507513-1606CHE002593

PATIENT
  Sex: Male

DRUGS (1)
  1. KEYTRUDA [Suspect]
     Active Substance: PEMBROLIZUMAB
     Indication: EPIDERMOLYSIS BULLOSA
     Dosage: 150 MG (50 MG, 3 DOSE UNITS), TWICE IN TOTAL
     Route: 042
     Dates: start: 20160531

REACTIONS (7)
  - Vomiting [Fatal]
  - Diarrhoea [Fatal]
  - Acute kidney injury [Fatal]
  - Malignant neoplasm progression [Fatal]
  - Dehydration [Fatal]
  - Electrolyte imbalance [Fatal]
  - Off label use [Unknown]

NARRATIVE: CASE EVENT DATE: 20160531
